FAERS Safety Report 17077221 (Version 1)
Quarter: 2019Q4

REPORT INFORMATION
  Report Type: Spontaneous
  Country: US (occurrence: US)
  Receive Date: 20191126
  Receipt Date: 20191126
  Transmission Date: 20200122
  Serious: No
  Sender: FDA-Public Use
  Company Number: US-AMGEN-USASP2019194203

PATIENT
  Sex: Female

DRUGS (2)
  1. EVISTA [Concomitant]
     Active Substance: RALOXIFENE HYDROCHLORIDE
     Dosage: UNK
     Dates: start: 201904
  2. REPATHA [Suspect]
     Active Substance: EVOLOCUMAB
     Indication: BLOOD CHOLESTEROL INCREASED
     Dosage: UNK
     Route: 065
     Dates: start: 201902

REACTIONS (6)
  - Palpitations [Unknown]
  - Throat clearing [Unknown]
  - Secretion discharge [Unknown]
  - Fatigue [Recovered/Resolved]
  - Neck pain [Unknown]
  - Pain in extremity [Unknown]
